FAERS Safety Report 6746053-7 (Version None)
Quarter: 2010Q2

REPORT INFORMATION
  Report Type: 
  Country: None (occurrence: None)
  Receive Date: 20100528
  Receipt Date: 20100519
  Transmission Date: 20101027
  Serious: Yes (Hospitalization)
  Sender: FDA-Public Use
  Company Number: BR-GENZYME-FABR-1001317

PATIENT

DRUGS (2)
  1. FABRAZYME [Suspect]
     Indication: FABRY'S DISEASE
     Dosage: 35 MG, Q2W
     Route: 042
     Dates: start: 20100304
  2. FABRAZYME [Suspect]
     Dosage: 105 MG, Q2W
     Route: 042
     Dates: start: 20091007, end: 20100201

REACTIONS (8)
  - ABDOMINAL PAIN UPPER [None]
  - ABNORMAL BEHAVIOUR [None]
  - ARTHRALGIA [None]
  - DEPRESSION [None]
  - INSOMNIA [None]
  - MELAENA [None]
  - PAIN [None]
  - SUICIDAL IDEATION [None]
